FAERS Safety Report 6887783-6 (Version None)
Quarter: 2010Q3

REPORT INFORMATION
  Report Type: 
  Country: None (occurrence: None)
  Receive Date: 20100730
  Receipt Date: 20080526
  Transmission Date: 20110219
  Serious: Yes (Disabling, Other)
  Sender: FDA-Public Use
  Company Number: HU-PFIZER INC-2008076718

PATIENT
  Age: 44 Year
  Sex: Male
  Weight: 78 kg

DRUGS (3)
  1. CHAMPIX [Suspect]
     Indication: SMOKING CESSATION THERAPY
     Dosage: 1 MG, 2X/DAY
     Route: 048
     Dates: start: 20070412
  2. XANAX [Concomitant]
     Dosage: UNK
     Route: 048
  3. IMOVANE [Concomitant]
     Route: 048

REACTIONS (12)
  - ACTIVITIES OF DAILY LIVING IMPAIRED [None]
  - AGORAPHOBIA [None]
  - ANXIETY DISORDER [None]
  - DEPRESSION [None]
  - HYPERAESTHESIA [None]
  - INITIAL INSOMNIA [None]
  - INTERVERTEBRAL DISC DEGENERATION [None]
  - IRRITABILITY [None]
  - OSTEOARTHRITIS [None]
  - PERSONALITY DISORDER [None]
  - RADICULOPATHY [None]
  - SOMATOFORM DISORDER [None]
